FAERS Safety Report 7445616-3 (Version None)
Quarter: 2011Q2

REPORT INFORMATION
  Report Type: 
  Country: None (occurrence: None)
  Receive Date: 20110429
  Receipt Date: 20110425
  Transmission Date: 20111010
  Serious: Yes (Hospitalization)
  Sender: FDA-Public Use
  Company Number: CO-ROCHE-773194

PATIENT
  Sex: Male

DRUGS (2)
  1. CYCLOSPORINE [Concomitant]
     Indication: IMMUNOMODULATORY THERAPY
  2. MYCOPHENOLATE MOFETIL [Suspect]
     Indication: LIVER TRANSPLANT
     Route: 048
     Dates: start: 20070316, end: 20110201

REACTIONS (1)
  - TRANSPLANT REJECTION [None]
